FAERS Safety Report 7707218-0 (Version None)
Quarter: 2011Q3

REPORT INFORMATION
  Report Type: 
  Country: None (occurrence: None)
  Receive Date: 20110824
  Receipt Date: 20110810
  Transmission Date: 20111222
  Serious: Yes (Other)
  Sender: FDA-Public Use
  Company Number: PHEH2011US01085

PATIENT
  Sex: Male

DRUGS (6)
  1. VIAGRA [Concomitant]
     Dosage: 100 MG, UNK
     Route: 048
  2. PATANOL [Concomitant]
     Dosage: UNK UKN, OT
  3. METROGEL [Concomitant]
     Indication: ROSACEA
     Dosage: UNK UKN, OT
  4. AMBIEN [Concomitant]
     Indication: INSOMNIA
     Dosage: 10 MG, QHS
  5. GILENYA [Suspect]
     Indication: MULTIPLE SCLEROSIS
     Dosage: 0.5 MG, QD
     Route: 048
     Dates: start: 20110509, end: 20110712
  6. NEURONTIN [Concomitant]
     Indication: NEUROPATHY PERIPHERAL
     Dosage: 300 MG, UNK,1-2 CAPS 3 DAY
     Route: 048

REACTIONS (3)
  - ABDOMINAL PAIN [None]
  - ABDOMINAL DISTENSION [None]
  - ERUCTATION [None]
